FAERS Safety Report 13191907 (Version 1)
Quarter: 2017Q1

REPORT INFORMATION
  Report Type: Spontaneous
  Country: US (occurrence: US)
  Receive Date: 20170206
  Receipt Date: 20170206
  Transmission Date: 20170428
  Serious: Yes (Life-Threatening, Hospitalization, Disabling, Other)
  Sender: FDA-Public Use
  Company Number: None

PATIENT
  Age: 71 Year
  Sex: Male
  Weight: 78.75 kg

DRUGS (5)
  1. PRALUENT [Suspect]
     Active Substance: ALIROCUMAB
     Indication: BLOOD CHOLESTEROL ABNORMAL
     Dosage: ?          OTHER FREQUENCY:EVERY 2 WEEKS;?
     Route: 030
     Dates: start: 20140919, end: 20170107
  2. CARDIZUM [Concomitant]
  3. MULTIPLE VIT [Concomitant]
  4. NEXIUM [Concomitant]
     Active Substance: ESOMEPRAZOLE MAGNESIUM
  5. FLECANIDE [Concomitant]
     Active Substance: FLECAINIDE

REACTIONS (16)
  - Cough [None]
  - Chest discomfort [None]
  - Weight decreased [None]
  - Pruritus [None]
  - Dyspnoea [None]
  - Asthenia [None]
  - Myalgia [None]
  - Immune system disorder [None]
  - Back pain [None]
  - Dizziness [None]
  - Fatigue [None]
  - Arthralgia [None]
  - Urine abnormality [None]
  - Tremor [None]
  - Bronchitis [None]
  - Flushing [None]

NARRATIVE: CASE EVENT DATE: 20170110
